FAERS Safety Report 10554187 (Version 1)
Quarter: 2014Q4

REPORT INFORMATION
  Report Type: Spontaneous
  Country: IE (occurrence: IE)
  Receive Date: 20141030
  Receipt Date: 20141030
  Transmission Date: 20150529
  Serious: No
  Sender: FDA-Public Use
  Company Number: IE-JNJFOC-20141015615

PATIENT
  Sex: Male

DRUGS (1)
  1. DURAGESIC [Suspect]
     Active Substance: FENTANYL
     Indication: PRODUCT USED FOR UNKNOWN INDICATION
     Route: 062

REACTIONS (5)
  - Product adhesion issue [Unknown]
  - Hyperhidrosis [Unknown]
  - Body temperature increased [Unknown]
  - Wrong technique in drug usage process [Unknown]
  - Inappropriate schedule of drug administration [Unknown]
